FAERS Safety Report 10950406 (Version 1)
Quarter: 2015Q1

REPORT INFORMATION
  Report Type: Spontaneous
  Country: JP (occurrence: JP)
  Receive Date: 20150324
  Receipt Date: 20150324
  Transmission Date: 20150721
  Serious: Yes (Other)
  Sender: FDA-Public Use
  Company Number: JP-PFIZER INC-2015080086

PATIENT
  Age: 62 Year
  Sex: Male

DRUGS (1)
  1. SUTENT [Suspect]
     Active Substance: SUNITINIB MALATE
     Indication: RENAL CELL CARCINOMA
     Dosage: UNK
     Dates: start: 20111114, end: 20121015

REACTIONS (4)
  - Lymphangiosis carcinomatosa [Recovered/Resolved]
  - Metastatic renal cell carcinoma [Unknown]
  - Disease progression [Unknown]
  - Palmar-plantar erythrodysaesthesia syndrome [Recovered/Resolved]

NARRATIVE: CASE EVENT DATE: 20120119
